FAERS Safety Report 6900914-4 (Version None)
Quarter: 2010Q3

REPORT INFORMATION
  Report Type: 
  Country: None (occurrence: None)
  Receive Date: 20100803
  Receipt Date: 20100727
  Transmission Date: 20110219
  Serious: Yes (Other)
  Sender: FDA-Public Use
  Company Number: A0873322A

PATIENT
  Age: 34 Year
  Sex: Female

DRUGS (4)
  1. COMBIVIR [Suspect]
     Indication: HIV INFECTION
     Route: 048
     Dates: start: 20040501
  2. VIRACEPT [Suspect]
     Indication: HIV INFECTION
     Route: 048
     Dates: start: 20040510
  3. VIDEX [Suspect]
     Indication: HIV INFECTION
     Route: 048
     Dates: start: 20040428, end: 20040510
  4. IRON [Concomitant]

REACTIONS (2)
  - DRUG EXPOSURE DURING PREGNANCY [None]
  - STILLBIRTH [None]
